FAERS Safety Report 4783222-X (Version None)
Quarter: 2005Q3

REPORT INFORMATION
  Report Type: 
  Country: None (occurrence: None)
  Receive Date: 20050929
  Receipt Date: 20050922
  Transmission Date: 20060218
  Serious: Yes (Other)
  Sender: FDA-Public Use
  Company Number: 2005UW14274

PATIENT
  Age: 30 Year
  Sex: Female

DRUGS (1)
  1. SEROQUEL [Suspect]
     Route: 048

REACTIONS (6)
  - ELECTROCARDIOGRAM QRS COMPLEX PROLONGED [None]
  - LEUKOCYTOSIS [None]
  - OVERDOSE [None]
  - PAIN [None]
  - SOMNOLENCE [None]
  - TACHYCARDIA [None]
